FAERS Safety Report 6003653-X (Version None)
Quarter: 2008Q4

REPORT INFORMATION
  Report Type: 
  Country: None (occurrence: None)
  Receive Date: 20081216
  Receipt Date: 20081203
  Transmission Date: 20090506
  Serious: Yes (Death, Life-Threatening)
  Sender: FDA-Public Use
  Company Number: SE-ELI_LILLY_AND_COMPANY-SE200811002248

PATIENT
  Sex: Female

DRUGS (6)
  1. FORTEO [Suspect]
     Indication: OSTEOPOROSIS
     Dosage: 20 UG, DAILY (1/D)
     Route: 065
     Dates: start: 20070308, end: 20080101
  2. LAMOTRIGINE [Concomitant]
     Indication: EPILEPSY
     Dosage: 20 MG, UNKNOWN
     Route: 065
     Dates: start: 20080602
  3. LAMOTRIGINE [Concomitant]
     Dosage: 50 MG, EACH EVENING
     Dates: start: 20080602
  4. KALCIPOS [Concomitant]
     Dosage: 1 D/F, 2/D
  5. OPTINATE [Concomitant]
     Dosage: 35 MG, WEEKLY (1/W)
  6. TRIOBE [Concomitant]
     Dosage: 1 D/F, DAILY (1/D)

REACTIONS (2)
  - DROWNING [None]
  - EPILEPSY [None]
